FAERS Safety Report 4861129-7 (Version None)
Quarter: 2005Q4

REPORT INFORMATION
  Report Type: 
  Country: None (occurrence: None)
  Receive Date: 20051216
  Receipt Date: 20051206
  Transmission Date: 20060501
  Serious: Yes (Death, Life-Threatening, Hospitalization, Other)
  Sender: FDA-Public Use
  Company Number: USA0506100927

PATIENT
  Age: 89 Year
  Sex: Female

DRUGS (4)
  1. ZYPREXA [Suspect]
     Indication: VASCULAR DEMENTIA
     Dosage: 10 MG, DAILY (1/D)
     Dates: start: 20040801
  2. VASOTEC [Concomitant]
  3. CALAN [Concomitant]
  4. XANAX [Concomitant]

REACTIONS (19)
  - ABDOMINAL DISTENSION [None]
  - ATRIAL FIBRILLATION [None]
  - BLOOD POTASSIUM INCREASED [None]
  - CARDIAC ARREST [None]
  - CARDIAC FAILURE [None]
  - DRUG TOXICITY [None]
  - HAEMATOMA [None]
  - HAEMORRHAGE [None]
  - HYPERCOAGULATION [None]
  - INTESTINAL PERFORATION [None]
  - LARGE INTESTINE PERFORATION [None]
  - METABOLIC ACIDOSIS [None]
  - PLATELET COUNT DECREASED [None]
  - PNEUMONIA ASPIRATION [None]
  - RENAL FAILURE ACUTE [None]
  - RESPIRATORY FAILURE [None]
  - SEPTIC SHOCK [None]
  - THERAPEUTIC AGENT TOXICITY [None]
  - TRACHEOSTOMY [None]
